FAERS Safety Report 24012828 (Version 1)
Quarter: 2024Q2

REPORT INFORMATION
  Report Type: Report from Study
  Country: BR (occurrence: BR)
  Receive Date: 20240626
  Receipt Date: 20240626
  Transmission Date: 20240716
  Serious: Yes (Other)
  Sender: FDA-Public Use
  Company Number: BR-CELLTRION INC.-2024BR014270

PATIENT

DRUGS (4)
  1. INFLIXIMAB [Suspect]
     Active Substance: INFLIXIMAB
     Indication: Colitis ulcerative
     Dosage: 7 AMPOULES EVERY 2 MONTHS
     Route: 042
     Dates: start: 202209
  2. INFLIXIMAB [Suspect]
     Active Substance: INFLIXIMAB
     Dosage: 7 AMPOULES EVERY 2 MONTHS
     Route: 042
     Dates: start: 20240611
  3. ALPRAZOLAM [Concomitant]
     Active Substance: ALPRAZOLAM
     Indication: Anxiety
     Dosage: 2 PILLS A DAY (START DATE: 1.5 YEAR AGO)
     Route: 048
  4. SULPIRIDE [Concomitant]
     Active Substance: SULPIRIDE
     Indication: Anxiety
     Dosage: 2 PILLS A DAY (START DATE: 1.5 YEAR AGO)
     Route: 048

REACTIONS (3)
  - Colitis ulcerative [Unknown]
  - Dengue fever [Unknown]
  - Intentional dose omission [Unknown]

NARRATIVE: CASE EVENT DATE: 20240401
